FAERS Safety Report 10233820 (Version 2)
Quarter: 2014Q2

REPORT INFORMATION
  Report Type: Spontaneous
  Country: US (occurrence: US)
  Receive Date: 20140612
  Receipt Date: 20140612
  Transmission Date: 20141212
  Serious: Yes (Hospitalization)
  Sender: FDA-Public Use
  Company Number: US-TAKEDA-2014TUS002526

PATIENT
  Sex: Female
  Weight: 79.82 kg

DRUGS (1)
  1. BRINTELLIX [Suspect]
     Indication: DEPRESSION
     Dosage: 10 MG, QD
     Route: 048
     Dates: start: 20140312, end: 20140319

REACTIONS (3)
  - Headache [Recovered/Resolved]
  - Dizziness [Unknown]
  - Nausea [Recovered/Resolved]
